FAERS Safety Report 23058607 (Version 1)
Quarter: 2023Q4

REPORT INFORMATION
  Report Type: Spontaneous
  Country: ES (occurrence: ES)
  Receive Date: 20231012
  Receipt Date: 20231012
  Transmission Date: 20240110
  Serious: Yes (Hospitalization)
  Sender: FDA-Public Use
  Company Number: None

PATIENT
  Age: 68 Year
  Sex: Female

DRUGS (4)
  1. SPIRONOLACTONE [Suspect]
     Active Substance: SPIRONOLACTONE
     Indication: Ascites
     Dosage: 100.0 MG, 1X/DAY; 100.0 MG EVERY 24 HOURS
     Route: 048
     Dates: start: 20220923, end: 20230313
  2. OMEPRAZOL TECNIGEN [Concomitant]
     Indication: Injury
     Dosage: 20.0 MG, 1X/DAY; 20.0 MG BEFORE BREAKFAST
     Route: 048
     Dates: start: 20200419
  3. LEVOTHYROXINE SODIUM [Concomitant]
     Active Substance: LEVOTHYROXINE SODIUM
     Indication: Hypothyroidism
     Dosage: 75.0 UG, 1X/DAY; 75.0 UG BEFORE BREAKFAST
     Route: 048
     Dates: start: 20170830
  4. TOUJEO [Concomitant]
     Active Substance: INSULIN GLARGINE
     Indication: Diabetes mellitus
     Dosage: 12.0 IU, 1X/DAY; 12.0 IU EVERY 24 HOURS (3 PENS OF 1.5 ML)
     Route: 058
     Dates: start: 20190928

REACTIONS (4)
  - Hyponatraemia [Recovered/Resolved]
  - Lactic acidosis [Recovered/Resolved]
  - Hyperkalaemia [Recovered/Resolved]
  - Acute kidney injury [Recovered/Resolved]

NARRATIVE: CASE EVENT DATE: 20230310
